FAERS Safety Report 7395703-3 (Version None)
Quarter: 2011Q2

REPORT INFORMATION
  Report Type: 
  Country: None (occurrence: None)
  Receive Date: 20110405
  Receipt Date: 20110105
  Transmission Date: 20111010
  Serious: No
  Sender: FDA-Public Use
  Company Number: US-BAYER-2011-029208

PATIENT
  Sex: Female
  Weight: 59 kg

DRUGS (1)
  1. ONE A DAY TEEN ADVANTAGE FOR HER [Suspect]
     Dosage: COUNT BOTTLE 80S
     Route: 048
     Dates: start: 20101001

REACTIONS (1)
  - NO ADVERSE EVENT [None]
